FAERS Safety Report 15363329 (Version 3)
Quarter: 2018Q4

REPORT INFORMATION
  Report Type: Spontaneous
  Country: JP (occurrence: JP)
  Receive Date: 20180907
  Receipt Date: 20181017
  Transmission Date: 20190204
  Serious: Yes (Life-Threatening, Hospitalization, Other)
  Sender: FDA-Public Use
  Company Number: JP-SA-2018SA243648

PATIENT
  Age: 57 Year
  Sex: Female

DRUGS (12)
  1. FLUOROURACIL. [Suspect]
     Active Substance: FLUOROURACIL
     Indication: METASTASES TO BONE
     Dosage: 2000 MG/M2 10TH COURSE.
  2. OXALIPLATIN. [Suspect]
     Active Substance: OXALIPLATIN
     Indication: METASTASES TO BONE
     Dosage: UNK UNK, QCY
  3. OXALIPLATIN. [Suspect]
     Active Substance: OXALIPLATIN
     Indication: METASTASES TO LIVER
     Dosage: 85 MG/M2 10TH COURSE
  4. PANITUMUMAB [Suspect]
     Active Substance: PANITUMUMAB
     Indication: RECTAL CANCER
  5. OXALIPLATIN. [Suspect]
     Active Substance: OXALIPLATIN
     Indication: RECTAL CANCER
  6. PANITUMUMAB [Suspect]
     Active Substance: PANITUMUMAB
     Indication: METASTASES TO LIVER
     Dosage: 4.5 MG/KG IN 10TH COURSE.
  7. FLUOROURACIL. [Suspect]
     Active Substance: FLUOROURACIL
     Indication: RECTAL CANCER
     Dosage: UNK UNK, QCY
  8. FLUOROURACIL. [Suspect]
     Active Substance: FLUOROURACIL
     Indication: METASTASES TO LIVER
     Dosage: 10TH COURSE200 MG/M2
  9. PANITUMUMAB [Suspect]
     Active Substance: PANITUMUMAB
     Indication: METASTASES TO BONE
     Dosage: 4.5 MG/KG
  10. FOLINIC ACID [Suspect]
     Active Substance: LEUCOVORIN
     Indication: METASTASES TO BONE
     Dosage: 200 MG/M2 10TH COURSE
  11. FOLINIC ACID [Suspect]
     Active Substance: LEUCOVORIN
     Indication: METASTASES TO LIVER
  12. FOLINIC ACID [Suspect]
     Active Substance: LEUCOVORIN
     Indication: RECTAL CANCER
     Dosage: UNK, QCY

REACTIONS (9)
  - Fatigue [Unknown]
  - Asterixis [Recovering/Resolving]
  - Pneumonia aspiration [Recovering/Resolving]
  - Coma [Recovering/Resolving]
  - Altered state of consciousness [Recovering/Resolving]
  - Hyperammonaemia [Recovering/Resolving]
  - Febrile neutropenia [Unknown]
  - Neutropenia [Unknown]
  - Hepatic encephalopathy [Recovering/Resolving]
